FAERS Safety Report 8217702-1 (Version None)
Quarter: 2012Q1

REPORT INFORMATION
  Report Type: 
  Country: None (occurrence: None)
  Receive Date: 20120314
  Receipt Date: 20120228
  Transmission Date: 20120608
  Serious: Yes (Hospitalization)
  Sender: FDA-Public Use
  Company Number: BC785167A

PATIENT
  Sex: Female

DRUGS (12)
  1. DIGOXIN [Suspect]
     Indication: CARDIAC FAILURE
     Dosage: .25 MG/PER DAY/ORAL
     Route: 048
     Dates: start: 20111129, end: 20111211
  2. LANSOPRAZOLE [Concomitant]
  3. ALLOPURINOL [Concomitant]
  4. ATORVASTATIN CALCIUM [Concomitant]
  5. FUROSEMIDE [Concomitant]
  6. TIOTROPIUM [Concomitant]
  7. OMEGA-3 TRIGLYCERIDES [Concomitant]
  8. OXYGEN [Concomitant]
  9. WARFARIN SODIUM [Concomitant]
  10. LOSARTAN POTASSIUM [Concomitant]
  11. BUDESONIDE [Concomitant]
  12. CANRENOATE POTASSIUM [Concomitant]

REACTIONS (4)
  - VOMITING [None]
  - CONFUSIONAL STATE [None]
  - DIARRHOEA [None]
  - DECREASED APPETITE [None]
